FAERS Safety Report 5804768-9 (Version None)
Quarter: 2008Q3

REPORT INFORMATION
  Report Type: 
  Country: None (occurrence: None)
  Receive Date: 20080709
  Receipt Date: 20080701
  Transmission Date: 20090109
  Serious: Yes (Other)
  Sender: FDA-Public Use
  Company Number: GB-AMGEN-US291356

PATIENT
  Sex: Male
  Weight: 27.4 kg

DRUGS (2)
  1. ENBREL [Suspect]
     Indication: JUVENILE ARTHRITIS
     Route: 058
     Dates: start: 20070207
  2. CHLORPHENIRAMINE MALEATE [Concomitant]
     Route: 048
     Dates: start: 20070401

REACTIONS (2)
  - ABNORMAL BEHAVIOUR [None]
  - EMOTIONAL DISORDER [None]
